FAERS Safety Report 6674808-6 (Version None)
Quarter: 2010Q2

REPORT INFORMATION
  Report Type: 
  Country: None (occurrence: None)
  Receive Date: 20100409
  Receipt Date: 20100330
  Transmission Date: 20101027
  Serious: Yes (Other)
  Sender: FDA-Public Use
  Company Number: US-PFIZER INC-2010041337

PATIENT
  Sex: Female
  Weight: 51 kg

DRUGS (3)
  1. CHANTIX [Suspect]
     Indication: SMOKING CESSATION THERAPY
     Dosage: 0.5 MG, 1X/DAY
     Route: 048
     Dates: start: 20100330
  2. TRAZODONE [Concomitant]
     Indication: RESTLESS LEGS SYNDROME
     Dosage: UNK
  3. MOTRIN [Concomitant]
     Dosage: UNK

REACTIONS (1)
  - NERVOUSNESS [None]
